FAERS Safety Report 20777212 (Version 1)
Quarter: 2022Q2

REPORT INFORMATION
  Report Type: Spontaneous
  Country: US (occurrence: US)
  Receive Date: 20220503
  Receipt Date: 20220503
  Transmission Date: 20220720
  Serious: No
  Sender: FDA-Public Use
  Company Number: US-NEBO-PC008311

PATIENT
  Age: 68 Year
  Sex: Female

DRUGS (1)
  1. MONOFERRIC [Suspect]
     Active Substance: FERRIC DERISOMALTOSE
     Indication: Iron deficiency anaemia
     Route: 042
     Dates: start: 20220418, end: 20220418

REACTIONS (6)
  - Infusion site extravasation [Unknown]
  - Infusion site discolouration [Unknown]
  - Infusion site swelling [Unknown]
  - Pain in extremity [Unknown]
  - Paraesthesia [Unknown]
  - Product administration error [Unknown]

NARRATIVE: CASE EVENT DATE: 20220418
